FAERS Safety Report 8517025-7 (Version None)
Quarter: 2012Q3

REPORT INFORMATION
  Report Type: 
  Country: None (occurrence: None)
  Receive Date: 20120718
  Receipt Date: 20120712
  Transmission Date: 20120928
  Serious: Yes (Hospitalization)
  Sender: FDA-Public Use
  Company Number: US-BAYER-201015470NA

PATIENT
  Age: 26 Year
  Sex: Female
  Weight: 88.435 kg

DRUGS (6)
  1. CARDIZEM [Concomitant]
     Indication: HYPERTENSION
     Dosage: UNK
     Dates: start: 19940101, end: 20110101
  2. ORTHO TRI-CYCLEN [Concomitant]
     Dosage: UNK
     Dates: start: 20070319, end: 20100518
  3. SPIRONOLACTONE [Concomitant]
     Dosage: UNK
     Dates: start: 19940101
  4. YASMIN [Suspect]
     Dosage: UNK UNK, UNK
     Route: 048
     Dates: start: 20030101, end: 20060101
  5. GLUCOPHAGE [Concomitant]
     Indication: POLYCYSTIC OVARIES
     Dosage: UNK
     Dates: start: 19940101, end: 20110101
  6. LISINOPRIL [Concomitant]
     Indication: HYPERTENSION
     Dosage: UNK
     Dates: start: 19940101, end: 20110101

REACTIONS (3)
  - GALLBLADDER DISORDER [None]
  - CHOLELITHIASIS [None]
  - CHOLECYSTITIS ACUTE [None]
